FAERS Safety Report 25595423 (Version 1)
Quarter: 2025Q3

REPORT INFORMATION
  Report Type: Spontaneous
  Country: US (occurrence: US)
  Receive Date: 20250723
  Receipt Date: 20250723
  Transmission Date: 20251020
  Serious: Yes (Hospitalization, Other)
  Sender: EDGEWELL PERSONAL CARE BRANDS
  Company Number: US-Edgewell Personal Care, LLC-2181022

PATIENT
  Sex: Female

DRUGS (1)
  1. BANANA BOAT ULTRA SPORT SUNSCREEN BROAD SPECTRUM SPF 50 [Suspect]
     Active Substance: AVOBENZONE\HOMOSALATE\OCTISALATE\OCTOCRYLENE
     Indication: Prophylaxis against solar radiation

REACTIONS (5)
  - Sunburn [Unknown]
  - Hospitalisation [Unknown]
  - Stress [Unknown]
  - Discomfort [Unknown]
  - Pain [Unknown]
